FAERS Safety Report 4741639-3 (Version None)
Quarter: 2005Q3

REPORT INFORMATION
  Report Type: 
  Country: None (occurrence: None)
  Receive Date: 20050801
  Receipt Date: 20050603
  Transmission Date: 20060218
  Serious: No
  Sender: FDA-Public Use
  Company Number: 2005PV000012

PATIENT
  Age: 62 Year
  Sex: Male
  Weight: 63.5036 kg

DRUGS (9)
  1. BYETTA [Suspect]
     Indication: DIABETES MELLITUS NON-INSULIN-DEPENDENT
     Dosage: 5 UG; BID; SC
     Route: 058
     Dates: start: 20050601
  2. AVANDAMET [Concomitant]
  3. VYTORIN [Concomitant]
  4. PLAVIX [Concomitant]
  5. METOPROLOL [Concomitant]
  6. FISH OIL [Concomitant]
  7. ASPIRIN [Concomitant]
  8. ASCORBIC ACID [Concomitant]
  9. PICOLINATE [Concomitant]

REACTIONS (2)
  - FATIGUE [None]
  - NAUSEA [None]
